FAERS Safety Report 4597265-2 (Version None)
Quarter: 2005Q1

REPORT INFORMATION
  Report Type: 
  Country: None (occurrence: None)
  Receive Date: 20050301
  Receipt Date: 20050218
  Transmission Date: 20050727
  Serious: Yes (Other)
  Sender: FDA-Public Use
  Company Number: 200510079BYL

PATIENT
  Age: 80 Year
  Sex: Male
  Weight: 70.8 kg

DRUGS (7)
  1. ASPIRIN [Suspect]
     Indication: ATRIAL FIBRILLATION
     Dosage: ORAL
     Route: 048
     Dates: start: 20040301, end: 20050107
  2. DISOPYRAMIDE [Concomitant]
     Indication: ATRIAL FIBRILLATION
     Dosage: ORAL
     Route: 048
     Dates: start: 20040301
  3. NIVADIL [Concomitant]
  4. NU-LOTAN [Concomitant]
  5. ALLOPURINOL [Concomitant]
  6. MUCODYNE [Concomitant]
  7. THEO-DUR [Concomitant]

REACTIONS (4)
  - ALOPECIA [None]
  - DERMATITIS EXFOLIATIVE [None]
  - SKIN DISORDER [None]
  - SKIN EXFOLIATION [None]
